FAERS Safety Report 16046443 (Version 3)
Quarter: 2019Q2

REPORT INFORMATION
  Report Type: Report from Study
  Country: IT (occurrence: IT)
  Receive Date: 20190307
  Receipt Date: 20190403
  Transmission Date: 20190711
  Serious: Yes (Hospitalization)
  Sender: FDA-Public Use
  Company Number: PHHY2019IT048386

PATIENT
  Age: 71 Year
  Sex: Female
  Weight: 63 kg

DRUGS (9)
  1. RANITIDINE. [Concomitant]
     Active Substance: RANITIDINE
     Indication: GASTRIC DISORDER
     Dosage: 150 MG, UNK
     Route: 065
     Dates: start: 20180611
  2. DIURESIX [Concomitant]
     Active Substance: TORSEMIDE
     Indication: HYPERTENSION
     Dosage: 10 MG, UNK
     Route: 065
     Dates: start: 20180923
  3. APLACTIN [Concomitant]
     Active Substance: PRAVASTATIN SODIUM
     Indication: HYPERTENSION
     Dosage: 40 MG, UNK
     Route: 065
     Dates: start: 20180310
  4. CALCIJEX [Concomitant]
     Active Substance: CALCITRIOL
     Indication: VITAMIN D DECREASED
     Dosage: 0.25 MG, UNK
     Route: 065
     Dates: start: 20181111
  5. TRAMETINIB [Suspect]
     Active Substance: TRAMETINIB
     Indication: MALIGNANT MELANOMA
     Dosage: 2 MG, UNK
     Route: 048
     Dates: start: 20150314, end: 20190128
  6. DELTACORTENE [Concomitant]
     Active Substance: PREDNISONE
     Indication: ASTHENIA
     Dosage: 25 MG, UNK
     Route: 065
     Dates: start: 20150611
  7. DABRAFENIB [Suspect]
     Active Substance: DABRAFENIB
     Indication: MALIGNANT MELANOMA
     Dosage: 300 MG, BID
     Route: 065
     Dates: start: 20150212, end: 20190118
  8. PLAUNAC [Concomitant]
     Active Substance: OLMESARTAN MEDOXOMIL
     Indication: HYPERTENSION
     Dosage: 40 MG, UNK
     Route: 065
     Dates: start: 20180611
  9. GAVISCON [Concomitant]
     Active Substance: ALUMINUM HYDROXIDE\MAGNESIUM CARBONATE
     Indication: GASTRIC DISORDER
     Dosage: 1 DF, BID
     Route: 065
     Dates: start: 20171017

REACTIONS (5)
  - Diarrhoea [Recovered/Resolved]
  - Acute kidney injury [Recovered/Resolved]
  - Acute kidney injury [Recovered/Resolved]
  - Campylobacter infection [Unknown]
  - Vomiting [Recovered/Resolved]

NARRATIVE: CASE EVENT DATE: 20190118
